FAERS Safety Report 7119365-5 (Version None)
Quarter: 2010Q4

REPORT INFORMATION
  Report Type: 
  Country: None (occurrence: None)
  Receive Date: 20101123
  Receipt Date: 20101119
  Transmission Date: 20110411
  Serious: Yes (Hospitalization)
  Sender: FDA-Public Use
  Company Number: DE-US-EMD SERONO, INC.-7020736

PATIENT
  Sex: Male
  Weight: 52 kg

DRUGS (1)
  1. REBIF [Suspect]
     Indication: MULTIPLE SCLEROSIS
     Route: 058
     Dates: end: 20100901

REACTIONS (3)
  - APATHY [None]
  - DEPRESSION [None]
  - SUICIDAL IDEATION [None]
